FAERS Safety Report 5907282-5 (Version None)
Quarter: 2008Q4

REPORT INFORMATION
  Report Type: 
  Country: None (occurrence: None)
  Receive Date: 20081003
  Receipt Date: 20080926
  Transmission Date: 20090506
  Serious: Yes (Hospitalization)
  Sender: FDA-Public Use
  Company Number: US-ASTRAZENECA-2008UW20462

PATIENT
  Age: 58 Year
  Sex: Female

DRUGS (3)
  1. CRESTOR [Suspect]
     Indication: BLOOD CHOLESTEROL INCREASED
     Route: 048
     Dates: start: 20060101
  2. NEXIUM [Suspect]
  3. LISINOPRIL [Concomitant]

REACTIONS (1)
  - COLON CANCER [None]
